FAERS Safety Report 6551219-5 (Version None)
Quarter: 2010Q1

REPORT INFORMATION
  Report Type: 
  Country: None (occurrence: None)
  Receive Date: 20100121
  Receipt Date: 20100108
  Transmission Date: 20100710
  Serious: Yes (Life-Threatening)
  Sender: FDA-Public Use
  Company Number: ALA_00401_2010

PATIENT
  Age: 17 Year
  Sex: Male

DRUGS (3)
  1. METOCLOPRAMIDE [Suspect]
     Indication: DIARRHOEA
     Dosage: (ONCE INTRAVENOUS))
     Route: 042
  2. METOCLOPRAMIDE [Suspect]
     Indication: VOMITING
     Dosage: (ONCE INTRAVENOUS))
     Route: 042
  3. OMEPRAZOLE [Concomitant]

REACTIONS (18)
  - BLOOD CHROMOGRANIN A INCREASED [None]
  - BLOOD GASTRIN INCREASED [None]
  - CARCINOID TUMOUR [None]
  - CARCINOID TUMOUR OF THE STOMACH [None]
  - CIRCULATORY COLLAPSE [None]
  - DISSEMINATED INTRAVASCULAR COAGULATION [None]
  - GASTRIC PH DECREASED [None]
  - GASTRITIS HAEMORRHAGIC [None]
  - GENERAL PHYSICAL HEALTH DETERIORATION [None]
  - HEPATIC NEOPLASM [None]
  - HYPOTENSION [None]
  - IDIOSYNCRATIC DRUG REACTION [None]
  - LYMPHADENOPATHY [None]
  - METASTASES TO LIVER [None]
  - PNEUMONIA [None]
  - RENAL TUBULAR NECROSIS [None]
  - RHABDOMYOLYSIS [None]
  - SERUM SEROTONIN INCREASED [None]
